FAERS Safety Report 5495597-7 (Version None)
Quarter: 2007Q4

REPORT INFORMATION
  Report Type: 
  Country: None (occurrence: None)
  Receive Date: 20071015
  Receipt Date: 20061017
  Transmission Date: 20080405
  Serious: Yes (Other)
  Sender: FDA-Public Use
  Company Number: S06-USA-04331-01

PATIENT
  Age: 47 Year
  Sex: Female

DRUGS (1)
  1. LEXAPRO [Suspect]
     Indication: ANXIETY
     Dosage: 10 MG ONCE PO
     Route: 048
     Dates: start: 20061009, end: 20061009

REACTIONS (1)
  - SEROTONIN SYNDROME [None]
